FAERS Safety Report 8446888-9 (Version None)
Quarter: 2012Q2

REPORT INFORMATION
  Report Type: 
  Country: None (occurrence: None)
  Receive Date: 20120612
  Receipt Date: 20120612
  Transmission Date: 20120825
  Serious: Yes (Hospitalization)
  Sender: FDA-Public Use
  Company Number: None

PATIENT
  Sex: Female
  Weight: 63.5 kg

DRUGS (1)
  1. GEMCITABINE [Suspect]
     Dosage: 3794.5 MG TOTAL DOSE, 750MG/M2
     Dates: start: 20110906

REACTIONS (11)
  - CHILLS [None]
  - SEPSIS [None]
  - VOMITING [None]
  - KLEBSIELLA TEST POSITIVE [None]
  - ESCHERICHIA TEST POSITIVE [None]
  - NAUSEA [None]
  - ASTHENIA [None]
  - TACHYCARDIA [None]
  - HYPOTENSION [None]
  - CULTURE URINE POSITIVE [None]
  - PYREXIA [None]
